FAERS Safety Report 4627401-0 (Version None)
Quarter: 2005Q2

REPORT INFORMATION
  Report Type: 
  Country: None (occurrence: None)
  Receive Date: 20050405
  Receipt Date: 20050322
  Transmission Date: 20051028
  Serious: Yes (Disabling)
  Sender: FDA-Public Use
  Company Number: 2004073860

PATIENT
  Age: 50 Year
  Sex: Female

DRUGS (9)
  1. GEODON [Suspect]
     Indication: BIPOLAR II DISORDER
     Dosage: 160 MG (40 MG, 2 IN 1 D), ORAL
     Route: 048
     Dates: start: 20040806, end: 20040924
  2. VALPROATE SEMISDOIUM (VALPROATE SEMISODIUM) [Concomitant]
  3. PIOGLITAOZNE (PIOGLTIAZONE) [Concomitant]
  4. RABEPRAZOLE SODIUM [Concomitant]
  5. MELOXICAM [Concomitant]
  6. MERFROMIN HYDROCHLORIDE (METFORMIN HYDROCHLORIDE) [Concomitant]
  7. TRAMADOL HCL [Concomitant]
  8. CETIRIZINE HYDROCHLORIDE (CETIRIZINE HYDROCHLORIDE0 [Concomitant]
  9. KARVEA HCT (HYDROCHLOROTHIAZIDE, IRBESARTAN) [Concomitant]

REACTIONS (4)
  - BALANCE DISORDER [None]
  - COORDINATION ABNORMAL [None]
  - DIFFICULTY IN WALKING [None]
  - TREMOR [None]
